FAERS Safety Report 20641681 (Version 2)
Quarter: 2023Q2

REPORT INFORMATION
  Report Type: Report from Study
  Country: SE (occurrence: SE)
  Receive Date: 20220328
  Receipt Date: 20230406
  Transmission Date: 20230722
  Serious: Yes (Death, Congenital Anomaly, Other)
  Sender: FDA-Public Use
  Company Number: SE-NOVARTISPH-NVSC2022SE065921

PATIENT
  Age: 3 Month
  Sex: Female
  Weight: 4.2 kg

DRUGS (6)
  1. RYDAPT [Suspect]
     Active Substance: MIDOSTAURIN
     Indication: Systemic mastocytosis
     Dosage: 13.75 MG, BID
     Route: 048
     Dates: start: 20211225
  2. RYDAPT [Suspect]
     Active Substance: MIDOSTAURIN
     Dosage: 60 MG/M2
     Route: 065
  3. ESOMEPRAZOLE [Concomitant]
     Active Substance: ESOMEPRAZOLE
     Indication: Systemic mastocytosis
     Dosage: 4 MG, QD
     Route: 065
     Dates: start: 20220131
  4. NUMETA G16E [Concomitant]
     Indication: Parenteral nutrition
     Dosage: 360 ML (OVER 24 H X 1)
     Route: 065
     Dates: start: 20220113
  5. FUROSEMIDE [Concomitant]
     Active Substance: FUROSEMIDE
     Indication: Fluid retention
     Dosage: 3 MG X 4 (TOTAL PARENTERAL NUTRITION)
     Route: 065
     Dates: start: 20220211
  6. CETIRIZINE HYDROCHLORIDE [Concomitant]
     Active Substance: CETIRIZINE HYDROCHLORIDE
     Indication: Antiallergic therapy
     Dosage: 1 MG X 4
     Route: 065
     Dates: start: 20211215

REACTIONS (6)
  - Cholestasis [Fatal]
  - Systemic mastocytosis [Fatal]
  - Malignant neoplasm progression [Fatal]
  - Multiple organ dysfunction syndrome [Fatal]
  - Infection [Unknown]
  - Pyrexia [Unknown]

NARRATIVE: CASE EVENT DATE: 20211225
